FAERS Safety Report 18117921 (Version 1)
Quarter: 2020Q3

REPORT INFORMATION
  Report Type: Spontaneous
  Country: US (occurrence: US)
  Receive Date: 20200805
  Receipt Date: 20200805
  Transmission Date: 20201103
  Serious: Yes (Death)
  Sender: FDA-Public Use
  Company Number: None

PATIENT
  Age: 78 Year
  Sex: Male
  Weight: 78.8 kg

DRUGS (16)
  1. METRONIDAZOLE. [Concomitant]
     Active Substance: METRONIDAZOLE
  2. DIGOXIN. [Concomitant]
     Active Substance: DIGOXIN
  3. FENTANYL. [Concomitant]
     Active Substance: FENTANYL
  4. PROPOFOL. [Concomitant]
     Active Substance: PROPOFOL
  5. METOPROLOL. [Concomitant]
     Active Substance: METOPROLOL
  6. CEFTRIAXONE. [Concomitant]
     Active Substance: CEFTRIAXONE
  7. AMIODARONE [Concomitant]
     Active Substance: AMIODARONE
  8. LEVOTHYROXINE. [Concomitant]
     Active Substance: LEVOTHYROXINE
  9. REMDESIVIR. [Suspect]
     Active Substance: REMDESIVIR
  10. VANCOMYCIN [Concomitant]
     Active Substance: VANCOMYCIN
  11. LOVENOX [Concomitant]
     Active Substance: ENOXAPARIN SODIUM
  12. LANSOPRAZOLE. [Concomitant]
     Active Substance: LANSOPRAZOLE
  13. DEXAMETHASONE. [Concomitant]
     Active Substance: DEXAMETHASONE
  14. DILTIAZEM. [Concomitant]
     Active Substance: DILTIAZEM
  15. PIPERACILLIN AND TAZOBACTAM [Concomitant]
     Active Substance: PIPERACILLIN SODIUM\TAZOBACTAM SODIUM
  16. MORPHINE [Concomitant]
     Active Substance: MORPHINE

REACTIONS (2)
  - Renal impairment [None]
  - Creatinine renal clearance increased [None]

NARRATIVE: CASE EVENT DATE: 20200803
